FAERS Safety Report 10045704 (Version 1)
Quarter: 2014Q1

REPORT INFORMATION
  Report Type: Spontaneous
  Country: US (occurrence: None)
  Receive Date: 20140306
  Receipt Date: 20140306
  Transmission Date: 20141002
  Serious: Yes (Hospitalization)
  Sender: FDA-Public Use
  Company Number: 163-21880-13054752

PATIENT
  Age: 64 Year
  Sex: Female
  Weight: 45.36 kg

DRUGS (1)
  1. REVLIMID (LENALIDOMIDE) (25 MILLIGRAM, CAPSULES) [Suspect]
     Indication: PLASMA CELL MYELOMA
     Dosage: 4/2013-TEMPORARILY; 14 IN 21 D
     Route: 048
     Dates: start: 201304

REACTIONS (1)
  - Constipation [None]
